FAERS Safety Report 7385009-0 (Version None)
Quarter: 2011Q1

REPORT INFORMATION
  Report Type: 
  Country: None (occurrence: None)
  Receive Date: 20110330
  Receipt Date: 20110302
  Transmission Date: 20110831
  Serious: No
  Sender: FDA-Public Use
  Company Number: US-BAYER-2011-020138

PATIENT
  Sex: Male
  Weight: 79 kg

DRUGS (6)
  1. ALEVE (CAPLET) [Suspect]
     Indication: ANALGESIC THERAPY
     Dosage: 220 MG, BID
     Route: 048
     Dates: start: 20101201
  2. VITAMIN A [Concomitant]
     Dosage: UNK
  3. VITAMIN B12 NOS [Concomitant]
     Dosage: UNK
  4. PANTETHINE [Concomitant]
     Dosage: UNK
  5. SELENIUM [SELENIUM] [Concomitant]
     Dosage: UNK
  6. GLUCOSAMINE [GLUCOSAMINE] [Concomitant]
     Dosage: UNK

REACTIONS (1)
  - NO ADVERSE EVENT [None]
